FAERS Safety Report 8391628-5 (Version None)
Quarter: 2012Q2

REPORT INFORMATION
  Report Type: 
  Country: None (occurrence: None)
  Receive Date: 20120529
  Receipt Date: 20120518
  Transmission Date: 20120825
  Serious: Yes (Hospitalization)
  Sender: FDA-Public Use
  Company Number: GB-ASTRAZENECA-2012SE32179

PATIENT
  Age: 10090 Day
  Sex: Female

DRUGS (2)
  1. SEROQUEL [Suspect]
     Indication: PSYCHOTIC DISORDER
     Dosage: 100MG IN MORNING, 500MG AT NIGHT
     Route: 048
     Dates: start: 20111221
  2. SEROQUEL [Suspect]
     Indication: DEPRESSION
     Dosage: 100MG IN MORNING, 500MG AT NIGHT
     Route: 048
     Dates: start: 20111221

REACTIONS (3)
  - ABSCESS [None]
  - WEIGHT INCREASED [None]
  - BLOOD GLUCOSE INCREASED [None]
